FAERS Safety Report 26061175 (Version 1)
Quarter: 2025Q4

REPORT INFORMATION
  Report Type: Spontaneous
  Country: US (occurrence: US)
  Receive Date: 20251118
  Receipt Date: 20251118
  Transmission Date: 20260117
  Serious: Yes (Other)
  Sender: SANDOZ
  Company Number: US-SANDOZ-SDZ2025US086097

PATIENT
  Age: 69 Year
  Sex: Female

DRUGS (1)
  1. RECLAST [Suspect]
     Active Substance: ZOLEDRONIC ACID
     Indication: Ehlers-Danlos syndrome
     Dosage: UNK
     Route: 065

REACTIONS (7)
  - Paralysis [Recovering/Resolving]
  - Gait disturbance [Unknown]
  - Migraine [Unknown]
  - Extremity contracture [Unknown]
  - Urinary incontinence [Unknown]
  - Blood test abnormal [Unknown]
  - Pain [Unknown]
